FAERS Safety Report 5595910-6 (Version None)
Quarter: 2008Q1

REPORT INFORMATION
  Report Type: 
  Country: None (occurrence: None)
  Receive Date: 20080118
  Receipt Date: 20080110
  Transmission Date: 20080703
  Serious: Yes (Hospitalization)
  Sender: FDA-Public Use
  Company Number: US-ASTRAZENECA-2007AP08072

PATIENT
  Age: 24622 Day
  Sex: Female
  Weight: 84.8 kg

DRUGS (12)
  1. AZD2281 [Suspect]
     Indication: OVARIAN CANCER
     Route: 048
     Dates: start: 20071126, end: 20071211
  2. ATIVAN [Concomitant]
     Route: 048
  3. COMPAZINE [Concomitant]
     Dosage: EVRY 6 HOURS
  4. FENTANYL [Concomitant]
     Dosage: 25 UG/HR EVERY 72 HOURS
     Route: 048
  5. LEVOXYL [Concomitant]
  6. PERCOCET [Concomitant]
     Dosage: 10MG/325MG
     Route: 048
  7. PRILOSEC [Concomitant]
     Route: 048
  8. REGLAN [Concomitant]
     Route: 048
  9. ALIMTA [Concomitant]
     Dates: start: 20070316
  10. CARBOPLATIN [Concomitant]
     Dates: start: 20070430
  11. UNSPECIIFED PHASE 11 CLINICAL TRIAL DRUG (SC GM-CSF 04-305) [Concomitant]
     Dates: start: 20070701
  12. IRINOTECAN [Concomitant]
     Dates: start: 20070101

REACTIONS (3)
  - FAILURE TO THRIVE [None]
  - GENERALISED OEDEMA [None]
  - HYPONATRAEMIA [None]
